FAERS Safety Report 11865988 (Version 4)
Quarter: 2016Q1

REPORT INFORMATION
  Report Type: Spontaneous
  Country: US (occurrence: US)
  Receive Date: 20151223
  Receipt Date: 20160120
  Transmission Date: 20160526
  Serious: Yes (Other)
  Sender: FDA-Public Use
  Company Number: US-PFIZER INC-2015452679

PATIENT
  Age: 61 Year
  Sex: Female
  Weight: 61.23 kg

DRUGS (1)
  1. PHENYTOIN. [Suspect]
     Active Substance: PHENYTOIN
     Indication: GENERALISED TONIC-CLONIC SEIZURE
     Dosage: 200 MG, 2X/DAY (ONE IN MORNING AND ONE AT NIGHT)

REACTIONS (6)
  - Tremor [Recovered/Resolved]
  - Drug ineffective [Unknown]
  - Head injury [Recovered/Resolved]
  - Drug intolerance [Unknown]
  - Seizure [Recovered/Resolved]
  - Fall [Recovered/Resolved]
